FAERS Safety Report 8551704-0 (Version None)
Quarter: 2012Q3

REPORT INFORMATION
  Report Type: 
  Country: None (occurrence: None)
  Receive Date: 20120723
  Receipt Date: 20120723
  Transmission Date: 20120928
  Serious: Yes (Other)
  Sender: FDA-Public Use
  Company Number: None

PATIENT
  Sex: Male

DRUGS (2)
  1. CIPROFLOXACIN HCL [Suspect]
     Dosage: 500MG 2 TIMES A DAY PO
     Route: 048
  2. LEVOFLOXACIN [Suspect]
     Dosage: 750MG ONCE A DAY PO
     Route: 048

REACTIONS (3)
  - GAIT DISTURBANCE [None]
  - VISION BLURRED [None]
  - TENDON DISORDER [None]
